FAERS Safety Report 9375299 (Version 2)
Quarter: 2013Q3

REPORT INFORMATION
  Report Type: Spontaneous
  Country: FR (occurrence: FR)
  Receive Date: 20130628
  Receipt Date: 20130815
  Transmission Date: 20140515
  Serious: Yes (Death, Hospitalization)
  Sender: FDA-Public Use
  Company Number: FR-TEVA-415311ISR

PATIENT
  Age: 87 Year
  Sex: Female

DRUGS (8)
  1. FUROSEMIDE TEVA 40MG, SCORED TABLET [Suspect]
     Indication: OEDEMA PERIPHERAL
     Dosage: 1 DOSAGE FORMS DAILY;
     Route: 048
     Dates: start: 20130516, end: 20130525
  2. EBIXA [Concomitant]
  3. REMINYL [Concomitant]
  4. CARDENSIEL [Concomitant]
  5. KENZEN [Concomitant]
  6. LOXEN [Concomitant]
     Indication: BLOOD PRESSURE
  7. LEVOTHYROXINE [Concomitant]
  8. PARIET [Concomitant]

REACTIONS (5)
  - Cardiac disorder [Fatal]
  - Somnolence [Unknown]
  - Oliguria [Unknown]
  - Syncope [Unknown]
  - Pulmonary embolism [Unknown]
